FAERS Safety Report 6158064-3 (Version None)
Quarter: 2009Q2

REPORT INFORMATION
  Report Type: 
  Country: None (occurrence: None)
  Receive Date: 20090417
  Receipt Date: 20070316
  Transmission Date: 20091009
  Serious: Yes (Hospitalization, Other)
  Sender: FDA-Public Use
  Company Number: US-ASTRAZENECA-2006UW23358

PATIENT
  Age: 20947 Day
  Sex: Female
  Weight: 53.5 kg

DRUGS (45)
  1. SEROQUEL [Suspect]
     Indication: SCHIZOPHRENIA
     Route: 048
     Dates: start: 19990101, end: 20050811
  2. SEROQUEL [Suspect]
     Dosage: 25-50MG
     Route: 048
     Dates: start: 20041126
  3. NORVASC [Concomitant]
  4. INDOMETHACIN [Concomitant]
  5. AMIBID [Concomitant]
  6. ZYPREXA [Concomitant]
  7. ALLEGRA [Concomitant]
  8. GLUCOTROL [Concomitant]
  9. VIOXX [Concomitant]
  10. RANITIDINE [Concomitant]
  11. GLUCOPHAGE [Concomitant]
  12. ZESTRIL [Concomitant]
  13. SYNTHROID [Concomitant]
  14. LIPITOR [Concomitant]
  15. ZYRTEC [Concomitant]
  16. HYOSCYAMINE [Concomitant]
  17. ACTOS [Concomitant]
  18. INSULIN [Concomitant]
  19. CLARITIN [Concomitant]
  20. LANTUS [Concomitant]
  21. NOVOLIN R [Concomitant]
  22. PEPCID [Concomitant]
  23. VICODIN [Concomitant]
  24. PHENERGAN [Concomitant]
  25. DEMEROL [Concomitant]
  26. AUGMENTIN '125' [Concomitant]
  27. NASACORT [Concomitant]
  28. CHLORPROMAZINE [Concomitant]
  29. SIMVASTATIN [Concomitant]
  30. NASONEX [Concomitant]
  31. LEVAQUIN [Concomitant]
  32. CIPROFLOXACIN [Concomitant]
  33. VASOTEC [Concomitant]
  34. REGLAN [Concomitant]
  35. RESTORIL [Concomitant]
  36. TRANDATE [Concomitant]
  37. LIDOCAINE [Concomitant]
  38. ZOFRAN [Concomitant]
  39. FENTANYL CITRATE [Concomitant]
  40. NIMBEX [Concomitant]
  41. ZEMURON [Concomitant]
  42. DIPRIVAN [Concomitant]
  43. ROBINUL [Concomitant]
  44. LESCOL [Concomitant]
  45. ALBUTEROL [Concomitant]

REACTIONS (36)
  - ABDOMINAL DISTENSION [None]
  - ABDOMINAL PAIN [None]
  - ABDOMINAL PAIN UPPER [None]
  - ADRENAL MASS [None]
  - AGITATION [None]
  - BACK PAIN [None]
  - CHEST PAIN [None]
  - COLON POLYPECTOMY [None]
  - DEAFNESS UNILATERAL [None]
  - DEMENTIA [None]
  - DIABETES MELLITUS [None]
  - DIPLOPIA [None]
  - DIVERTICULUM [None]
  - DYSURIA [None]
  - FLANK PAIN [None]
  - GASTRITIS [None]
  - GASTROOESOPHAGEAL REFLUX DISEASE [None]
  - GROIN PAIN [None]
  - HALLUCINATION, AUDITORY [None]
  - MYALGIA [None]
  - OVARIAN TORSION [None]
  - PAIN IN EXTREMITY [None]
  - PALPITATIONS [None]
  - PANCREATITIS [None]
  - PARAESTHESIA [None]
  - PARANOIA [None]
  - PELVIC MASS [None]
  - POST PROCEDURAL HYPOTHYROIDISM [None]
  - SCHIZOPHRENIA [None]
  - SCHIZOPHRENIA, PARANOID TYPE [None]
  - STRESS [None]
  - SUPRAPUBIC PAIN [None]
  - THYROID ADENOMA [None]
  - THYROID NEOPLASM [None]
  - URINARY TRACT INFECTION [None]
  - WEIGHT DECREASED [None]
